FAERS Safety Report 11069688 (Version 1)
Quarter: 2015Q2

REPORT INFORMATION
  Report Type: Spontaneous
  Country: US (occurrence: US)
  Receive Date: 20150427
  Receipt Date: 20150427
  Transmission Date: 20150821
  Serious: No
  Sender: FDA-Public Use
  Company Number: US-B.I. PHARMACEUTICALS,INC./RIDGEFIELD-2015-BI-20682PF

PATIENT
  Sex: Female

DRUGS (1)
  1. SPIRIVA [Suspect]
     Active Substance: TIOTROPIUM BROMIDE MONOHYDRATE
     Indication: PRODUCT USED FOR UNKNOWN INDICATION
     Route: 065

REACTIONS (9)
  - Sinus congestion [Unknown]
  - Malaise [Unknown]
  - Sinus disorder [Unknown]
  - Dry mouth [Unknown]
  - Nasal congestion [Unknown]
  - Headache [Unknown]
  - Sinus headache [Unknown]
  - Sinus operation [Unknown]
  - Sinusitis [Unknown]
